FAERS Safety Report 23741900 (Version 1)
Quarter: 2024Q2

REPORT INFORMATION
  Report Type: Spontaneous
  Country: US (occurrence: None)
  Receive Date: 20240412
  Receipt Date: 20240412
  Transmission Date: 20240716
  Serious: Yes (Hospitalization)
  Sender: FDA-Public Use
  Company Number: None

PATIENT
  Age: 73 Year
  Sex: Female

DRUGS (1)
  1. RECLAST [Suspect]
     Active Substance: ZOLEDRONIC ACID
     Dosage: OTHER ROUTE : ONCE A YEAR;?
     Route: 050
     Dates: start: 20220101

REACTIONS (2)
  - Infusion related reaction [None]
  - Neuralgia [None]

NARRATIVE: CASE EVENT DATE: 20220101
